FAERS Safety Report 18689434 (Version 1)
Quarter: 2020Q4

REPORT INFORMATION
  Report Type: Spontaneous
  Country: US (occurrence: US)
  Receive Date: 20201231
  Receipt Date: 20201231
  Transmission Date: 20210114
  Serious: No
  Sender: FDA-Public Use
  Company Number: US-LUPIN PHARMACEUTICALS INC.-2020-06614

PATIENT
  Age: 24 Year
  Sex: Female

DRUGS (7)
  1. FENTANYL. [Suspect]
     Active Substance: FENTANYL
     Indication: INDUCTION OF ANAESTHESIA
     Dosage: 15 MICROGRAM
     Route: 037
  2. CEFAZOLIN [Suspect]
     Active Substance: CEFAZOLIN
     Indication: ANTIBIOTIC PROPHYLAXIS
     Dosage: 2 GRAM
     Route: 042
  3. BUPIVACAINE. [Suspect]
     Active Substance: BUPIVACAINE
     Indication: INDUCTION OF ANAESTHESIA
     Dosage: 0.75 PERCENT (HYPERBARIC) (COMBINED SPINAL-EPIDURAL)
     Route: 065
  4. PHENYLEPHRINE [Suspect]
     Active Substance: PHENYLEPHRINE HYDROCHLORIDE
     Dosage: BOLUSES
     Route: 042
  5. EPHEDRINE. [Suspect]
     Active Substance: EPHEDRINE
     Indication: BLOOD PRESSURE MEASUREMENT
     Dosage: UNK, BOLUSES
     Route: 042
  6. MORPHINE [Suspect]
     Active Substance: MORPHINE
     Indication: INDUCTION OF ANAESTHESIA
     Dosage: 150 MICROGRAM
     Route: 037
  7. PHENYLEPHRINE [Suspect]
     Active Substance: PHENYLEPHRINE HYDROCHLORIDE
     Indication: BLOOD PRESSURE ABNORMAL
     Dosage: 50 MICROGRAM PER MINUTE
     Route: 042

REACTIONS (1)
  - Maternal exposure during delivery [Unknown]
